FAERS Safety Report 5744830-2 (Version None)
Quarter: 2008Q2

REPORT INFORMATION
  Report Type: 
  Country: None (occurrence: None)
  Receive Date: 20080520
  Receipt Date: 20080508
  Transmission Date: 20081010
  Serious: Yes (Other)
  Sender: FDA-Public Use
  Company Number: GB-PFIZER INC-2008041285

PATIENT
  Age: 9 Year
  Sex: Female
  Weight: 37 kg

DRUGS (9)
  1. PHENYTOIN [Suspect]
     Indication: CONVULSION
     Dates: start: 20080131, end: 20080218
  2. SIROLIMUS [Interacting]
     Indication: RENAL TRANSPLANT
  3. ALFACALCIDOL [Concomitant]
     Route: 048
  4. AMLODIPINE [Concomitant]
     Route: 048
     Dates: start: 20070301, end: 20080228
  5. ATORVASTATIN CALCIUM [Concomitant]
     Route: 048
  6. AMOXICILLIN + CLAVULANATE POTASSIUM [Concomitant]
     Route: 048
  7. LEVOTHYROXINE SODIUM [Concomitant]
     Route: 048
  8. MYCOPHENOLATE MOFETIL [Concomitant]
     Route: 048
     Dates: start: 20071101, end: 20080131
  9. PREDNISOLONE [Concomitant]
     Route: 048

REACTIONS (2)
  - DRUG INTERACTION [None]
  - DRUG LEVEL BELOW THERAPEUTIC [None]
